FAERS Safety Report 12721264 (Version 1)
Quarter: 2016Q3

REPORT INFORMATION
  Report Type: Spontaneous
  Country: US (occurrence: US)
  Receive Date: 20160907
  Receipt Date: 20160907
  Transmission Date: 20161109
  Serious: Yes (Hospitalization, Other)
  Sender: FDA-Public Use
  Company Number: US-PFIZER INC-2016416171

PATIENT
  Age: 67 Year
  Sex: Female
  Weight: 71.2 kg

DRUGS (15)
  1. ASMANEX [Concomitant]
     Active Substance: MOMETASONE FUROATE
     Indication: ASTHMA
     Dosage: 220 UG, 2X/DAY
  2. VITAMIN B12 [Concomitant]
     Active Substance: CYANOCOBALAMIN
     Indication: DEPRESSION
     Dosage: 5000 UG, UNK
  3. CELEBREX [Suspect]
     Active Substance: CELECOXIB
     Indication: ARTHRITIS
     Dosage: 200 MG, 2X/DAY
  4. THYROXINE [Concomitant]
     Active Substance: LEVOTHYROXINE
     Indication: HYPOTHYROIDISM
     Dosage: 100 UG, DAILY
  5. VITAMIN B12 [Concomitant]
     Active Substance: CYANOCOBALAMIN
     Indication: ANXIETY
  6. TRAMADOL ER [Suspect]
     Active Substance: TRAMADOL HYDROCHLORIDE
     Indication: SCIATICA
     Dosage: 300 MG, 1X/DAY
     Route: 048
  7. VITAMIN D3 [Concomitant]
     Active Substance: CHOLECALCIFEROL
     Indication: VITAMIN D DEFICIENCY
     Dosage: 5000 IU, UNK
  8. LYRICA [Suspect]
     Active Substance: PREGABALIN
     Indication: FIBROMYALGIA
     Dosage: 150 MG, 2X/DAY
     Route: 048
     Dates: start: 2005
  9. LISINOPRIL. [Suspect]
     Active Substance: LISINOPRIL
     Indication: BLOOD PRESSURE ABNORMAL
     Dosage: 10 MG, DAILY
     Route: 048
     Dates: start: 201605
  10. PRIMIDONE. [Concomitant]
     Active Substance: PRIMIDONE
     Indication: TREMOR
     Dosage: 250 MG, 2X/DAY
  11. DULOXETINE. [Concomitant]
     Active Substance: DULOXETINE
     Indication: DEPRESSION
     Dosage: 30 MG, 1X/DAY
     Dates: start: 2016
  12. BIOTIN [Concomitant]
     Active Substance: BIOTIN
     Indication: ALOPECIA
     Dosage: 5000 UG, DAILY
  13. VERAPAMIL HCL [Suspect]
     Active Substance: VERAPAMIL HYDROCHLORIDE
     Indication: BLOOD PRESSURE ABNORMAL
     Dosage: 120 MG, 2X/DAY
     Route: 048
     Dates: start: 201605
  14. TOPIRAMATE. [Concomitant]
     Active Substance: TOPIRAMATE
     Indication: TREMOR
     Dosage: 50 MG, 2X/DAY
  15. ALIGN [Concomitant]
     Active Substance: BIFIDOBACTERIUM LONGUM SUBSP. INFANTIS
     Indication: COLITIS ULCERATIVE
     Dosage: 1 DF, DAILY

REACTIONS (16)
  - Weight decreased [Not Recovered/Not Resolved]
  - Cystitis [Recovered/Resolved]
  - Dizziness [Recovered/Resolved]
  - Breast pain [Unknown]
  - Eating disorder [Recovering/Resolving]
  - Decreased appetite [Unknown]
  - Hypotension [Recovered/Resolved]
  - Cholecystitis infective [Recovered/Resolved]
  - Fatigue [Recovering/Resolving]
  - Hepatic enzyme abnormal [Unknown]
  - Sepsis [Recovered/Resolved]
  - Somnolence [Recovering/Resolving]
  - Crying [Unknown]
  - Tremor [Unknown]
  - Pain [Unknown]
  - Skin burning sensation [Unknown]

NARRATIVE: CASE EVENT DATE: 2013
